FAERS Safety Report 25717748 (Version 1)
Quarter: 2025Q3

REPORT INFORMATION
  Report Type: Spontaneous
  Country: US (occurrence: US)
  Receive Date: 20250822
  Receipt Date: 20250822
  Transmission Date: 20251020
  Serious: Yes (Death)
  Sender: SAMSUNG BIOEPIS
  Company Number: US-SAMSUNG BIOEPIS-SB-2025-28503

PATIENT

DRUGS (1)
  1. ECULIZUMAB [Suspect]
     Active Substance: ECULIZUMAB
     Indication: Sickle cell disease

REACTIONS (4)
  - Toxic encephalopathy [Fatal]
  - Pneumococcal sepsis [Fatal]
  - Meningitis [Fatal]
  - Off label use [Unknown]
